FAERS Safety Report 13910419 (Version 1)
Quarter: 2017Q3

REPORT INFORMATION
  Report Type: Spontaneous
  Country: US (occurrence: US)
  Receive Date: 20170825
  Receipt Date: 20170825
  Transmission Date: 20171127
  Serious: Yes (Disabling)
  Sender: FDA-Public Use
  Company Number: None

PATIENT
  Age: 90 Year
  Sex: Male
  Weight: 65.25 kg

DRUGS (9)
  1. FISH OIL [Concomitant]
     Active Substance: FISH OIL
  2. WARFARIN [Concomitant]
     Active Substance: WARFARIN
  3. METOPROLOL. [Concomitant]
     Active Substance: METOPROLOL
  4. MAGNESIUM [Concomitant]
     Active Substance: MAGNESIUM
  5. ECONESIUM [Concomitant]
  6. FUROSCIMIDE [Concomitant]
  7. CALCIUM [Concomitant]
     Active Substance: CALCIUM
  8. MEVACOR [Suspect]
     Active Substance: LOVASTATIN
     Indication: BLOOD CHOLESTEROL INCREASED
     Route: 048
  9. C Q 10 [Concomitant]

REACTIONS (2)
  - Movement disorder [None]
  - Asthenia [None]
